FAERS Safety Report 22010137 (Version 1)
Quarter: 2023Q1

REPORT INFORMATION
  Report Type: Spontaneous
  Country: US (occurrence: US)
  Receive Date: 20230220
  Receipt Date: 20230220
  Transmission Date: 20230418
  Serious: No
  Sender: FDA-Public Use
  Company Number: US-ABBVIE-4311014

PATIENT
  Age: 67 Year
  Sex: Male
  Weight: 81.646 kg

DRUGS (1)
  1. CREON [Suspect]
     Active Substance: PANCRELIPASE AMYLASE\PANCRELIPASE LIPASE\PANCRELIPASE PROTEASE
     Indication: Pancreatic failure
     Dosage: 36000 INTERNATIONAL UNITS THOUSANDS
     Route: 048
     Dates: start: 202209

REACTIONS (3)
  - Blood glucose abnormal [Recovered/Resolved]
  - Diabetes mellitus inadequate control [Unknown]
  - Blood creatine increased [Recovered/Resolved]

NARRATIVE: CASE EVENT DATE: 20220201
